APPROVED DRUG PRODUCT: MINOCYCLINE HYDROCHLORIDE
Active Ingredient: MINOCYCLINE HYDROCHLORIDE
Strength: EQ 90MG BASE
Dosage Form/Route: TABLET, EXTENDED RELEASE;ORAL
Application: A090911 | Product #002
Applicant: PHARMOBEDIENT CONSULTING LLC
Approved: Jul 20, 2010 | RLD: No | RS: No | Type: DISCN